FAERS Safety Report 9145686 (Version 1)
Quarter: 2013Q1

REPORT INFORMATION
  Report Type: Spontaneous
  Country: CA (occurrence: CA)
  Receive Date: 20130307
  Receipt Date: 20130307
  Transmission Date: 20140127
  Serious: Yes (Other)
  Sender: FDA-Public Use
  Company Number: CA-TEVA-390057USA

PATIENT
  Age: 14 Year
  Sex: Female
  Weight: 60.84 kg

DRUGS (1)
  1. APRI 28 [Suspect]
     Dosage: 1 DOSAGE FORMS DAILY;
     Route: 048

REACTIONS (1)
  - Convulsion [Recovered/Resolved]
